FAERS Safety Report 5332851-3 (Version None)
Quarter: 2007Q2

REPORT INFORMATION
  Report Type: 
  Country: None (occurrence: None)
  Receive Date: 20070521
  Receipt Date: 20070503
  Transmission Date: 20071010
  Serious: Yes (Other)
  Sender: FDA-Public Use
  Company Number: DSA_29865_2007

PATIENT
  Age: 79 Year
  Sex: Male

DRUGS (1)
  1. ENALAPRIL MALEATE [Suspect]
     Dosage: ORAL
     Route: 048

REACTIONS (1)
  - DIABETES MELLITUS [None]
